FAERS Safety Report 23182335 (Version 1)
Quarter: 2023Q4

REPORT INFORMATION
  Report Type: Spontaneous
  Country: US (occurrence: None)
  Receive Date: 20231114
  Receipt Date: 20231114
  Transmission Date: 20240110
  Serious: Yes (Hospitalization)
  Sender: FDA-Public Use
  Company Number: None

PATIENT
  Age: 62 Year
  Sex: Male
  Weight: 90.5 kg

DRUGS (3)
  1. FLUOROURACIL [Suspect]
     Active Substance: FLUOROURACIL
     Dates: end: 20231102
  2. LEUCOVORIN CALCIUM [Suspect]
     Active Substance: LEUCOVORIN CALCIUM
     Dates: end: 20231031
  3. ELOXATIN [Suspect]
     Active Substance: OXALIPLATIN
     Dates: end: 20231031

REACTIONS (8)
  - Urinary tract infection [None]
  - Hypoxia [None]
  - Cystitis [None]
  - Chills [None]
  - Flank pain [None]
  - Urosepsis [None]
  - Urinary ascites [None]
  - Blood creatinine increased [None]

NARRATIVE: CASE EVENT DATE: 20231103
